FAERS Safety Report 7501997-3 (Version None)
Quarter: 2011Q2

REPORT INFORMATION
  Report Type: 
  Country: None (occurrence: None)
  Receive Date: 20110517
  Receipt Date: 20110503
  Transmission Date: 20111010
  Serious: Yes (Other)
  Sender: FDA-Public Use
  Company Number: CIP11001153

PATIENT
  Age: 36 Year
  Sex: Female

DRUGS (7)
  1. RISPERIDONE [Suspect]
     Indication: PSYCHOTIC DISORDER
     Dosage: 1 MG TWICE DAILY
  2. CALCIMAGON-D3 (CALCIUM CARBONATE, COLECALCIFEROL) [Concomitant]
  3. ACTONEL [Suspect]
     Dosage: 35 MG ONCE WEEKLY, ORAL
     Route: 047
  4. PREDNISONE [Concomitant]
     Dosage: 1 MG DAILY
  5. MESTINON [Suspect]
     Indication: MYASTHENIA GRAVIS
     Dosage: 60 MG FOUR TIMES A DAY
  6. AZATHIOPRINE [Suspect]
     Dosage: 50 MG 3 TIMES A DAY
  7. NEXIUM [Suspect]
     Dosage: 20 MG DAILY

REACTIONS (4)
  - DRUG EXPOSURE DURING PREGNANCY [None]
  - PROLONGED LABOUR [None]
  - FORCEPS DELIVERY [None]
  - LABOUR INDUCTION [None]
